FAERS Safety Report 5849511-2 (Version None)
Quarter: 2008Q3

REPORT INFORMATION
  Report Type: 
  Country: None (occurrence: None)
  Receive Date: 20080819
  Receipt Date: 20080813
  Transmission Date: 20090109
  Serious: Yes (Death, Hospitalization)
  Sender: FDA-Public Use
  Company Number: A0742458A

PATIENT
  Age: 25 Year
  Sex: Female

DRUGS (15)
  1. SEREVENT [Suspect]
     Indication: DRUG USE FOR UNKNOWN INDICATION
     Route: 065
  2. INSULIN [Concomitant]
  3. KLOR-CON [Concomitant]
  4. WARFARIN SODIUM [Concomitant]
  5. DARVOCET [Concomitant]
  6. VICODIN [Concomitant]
  7. METOCLOPRAMIDE [Concomitant]
  8. NEURONTIN [Concomitant]
  9. PREVACID [Concomitant]
  10. HYDROXYZINE PAMOATE [Concomitant]
  11. GEMFIBROZIL [Concomitant]
  12. ZETIA [Concomitant]
  13. FLEXERIL [Concomitant]
  14. LESCOL [Concomitant]
  15. OTHER MEDICATIONS [Concomitant]

REACTIONS (1)
  - DEATH [None]
